FAERS Safety Report 25167646 (Version 2)
Quarter: 2025Q2

REPORT INFORMATION
  Report Type: Spontaneous
  Country: KR (occurrence: KR)
  Receive Date: 20250407
  Receipt Date: 20250421
  Transmission Date: 20250716
  Serious: Yes (Hospitalization)
  Sender: PFIZER
  Company Number: KR-PFIZER INC-202500069888

PATIENT
  Age: 16 Year
  Sex: Male

DRUGS (4)
  1. VINCRISTINE SULFATE [Suspect]
     Active Substance: VINCRISTINE SULFATE
     Indication: Intracranial germ cell tumour
     Dosage: 2 MG, 1X/DAY
     Dates: start: 20230615, end: 20230615
  2. CARBOPLATIN [Suspect]
     Active Substance: CARBOPLATIN
     Indication: Intracranial germ cell tumour
     Dosage: 400 MG, 1X/DAY
     Dates: start: 20230615, end: 20230616
  3. IFOSFAMIDE [Suspect]
     Active Substance: IFOSFAMIDE
     Indication: Intracranial germ cell tumour
     Dosage: 1980 MG, 1X/DAY
     Dates: start: 20230615, end: 20230619
  4. ETOPOSIDE [Suspect]
     Active Substance: ETOPOSIDE
     Indication: Intracranial germ cell tumour
     Dosage: 100 MG, 1X/DAY
     Dates: start: 20230615, end: 20230616

REACTIONS (4)
  - Leukopenia [Recovering/Resolving]
  - Thrombocytopenia [Recovering/Resolving]
  - Anaemia [Recovering/Resolving]
  - Febrile neutropenia [Recovering/Resolving]

NARRATIVE: CASE EVENT DATE: 20230620
